FAERS Safety Report 7310349-0 (Version None)
Quarter: 2011Q1

REPORT INFORMATION
  Report Type: 
  Country: None (occurrence: None)
  Receive Date: 20110224
  Receipt Date: 20110218
  Transmission Date: 20110831
  Serious: Yes (Death, Other)
  Sender: FDA-Public Use
  Company Number: KR-ABBOTT-11P-090-0699663-00

PATIENT
  Age: 40 Year
  Sex: Male
  Weight: 49.5 kg

DRUGS (10)
  1. RAMEZOL [Concomitant]
     Indication: PROPHYLAXIS
     Route: 048
     Dates: start: 20100531, end: 20100623
  2. 3TC/AZT [Concomitant]
     Indication: ANTIRETROVIRAL THERAPY
     Dosage: 2 TABLETS DAILY
     Dates: start: 20100309, end: 20100624
  3. CACEPIN [Concomitant]
     Indication: PRODUCT USED FOR UNKNOWN INDICATION
     Route: 048
     Dates: start: 20100526, end: 20100604
  4. ORFIL SR [Concomitant]
     Indication: CONVULSION
     Route: 048
     Dates: start: 20100601, end: 20100623
  5. SULFAMETHOXAZOLE AND TRIMETHOPRIM [Concomitant]
     Indication: PNEUMONIA
     Dosage: 9 TABLETS DAILY
     Route: 048
     Dates: start: 20100401, end: 20100517
  6. SULFAMETHOXAZOLE AND TRIMETHOPRIM [Concomitant]
     Indication: PROPHYLAXIS
     Dosage: 1 TABLET DAILY
     Route: 048
     Dates: start: 20100309, end: 20100317
  7. RAMEZOL [Concomitant]
     Indication: GASTRIC DISORDER
  8. CACEPIN [Concomitant]
     Route: 048
     Dates: start: 20100605, end: 20100623
  9. KALETRA [Suspect]
     Indication: HIV INFECTION
     Route: 048
     Dates: start: 20100309, end: 20100623
  10. RAMEZOL [Concomitant]
     Indication: CHEMOTHERAPY

REACTIONS (8)
  - SEPSIS [None]
  - VOMITING PROJECTILE [None]
  - INTRACRANIAL PRESSURE INCREASED [None]
  - ASTHENIA [None]
  - NAUSEA [None]
  - WEIGHT DECREASED [None]
  - B-CELL LYMPHOMA [None]
  - HEADACHE [None]
